FAERS Safety Report 13366397 (Version 2)
Quarter: 2017Q3

REPORT INFORMATION
  Report Type: Spontaneous
  Country: TR (occurrence: TR)
  Receive Date: 20170323
  Receipt Date: 20170831
  Transmission Date: 20171127
  Serious: Yes (Hospitalization)
  Sender: FDA-Public Use
  Company Number: TR-IMPAX LABORATORIES, INC-2017-IPXL-00660

PATIENT
  Age: 22 Year
  Sex: Male

DRUGS (4)
  1. PROCAINE PENICILLIN G [Suspect]
     Active Substance: PENICILLIN G PROCAINE
     Indication: TONSILLITIS
     Dosage: 800000 IU, UNK
     Route: 030
  2. PHENIRAMINE MALEATE [Concomitant]
     Active Substance: PHENIRAMINE MALEATE
     Indication: PRODUCT USED FOR UNKNOWN INDICATION
     Dosage: 45.5 MG, UNK
     Route: 042
  3. ADRENACLICK [Suspect]
     Active Substance: EPINEPHRINE
     Indication: LARYNGEAL OEDEMA
     Dosage: 0.5 ML, UNK
     Route: 030
  4. PREDNISOLONE. [Concomitant]
     Active Substance: PREDNISOLONE
     Indication: PRODUCT USED FOR UNKNOWN INDICATION
     Dosage: 40 MG, UNK
     Route: 065

REACTIONS (1)
  - Kounis syndrome [Unknown]
